FAERS Safety Report 4370936-9 (Version None)
Quarter: 2004Q2

REPORT INFORMATION
  Report Type: 
  Country: None (occurrence: None)
  Receive Date: 20040603
  Receipt Date: 20040603
  Transmission Date: 20050107
  Serious: Yes (Other)
  Sender: FDA-Public Use
  Company Number: None

PATIENT
  Age: 39 Year
  Sex: Female
  Weight: 59 kg

DRUGS (8)
  1. ARALAST [Suspect]
     Dosage: 4000 MG  WK
     Dates: start: 20040521
  2. SINGULAIR [Concomitant]
  3. ALBUTEROL [Concomitant]
  4. UNIPHYLL [Concomitant]
  5. NEONEB [Concomitant]
  6. ASPIRIN [Concomitant]
  7. PROTONIX [Concomitant]
  8. DUONEB [Concomitant]

REACTIONS (2)
  - DYSPNOEA [None]
  - EYE SWELLING [None]
